FAERS Safety Report 8411159-3 (Version None)
Quarter: 2012Q2

REPORT INFORMATION
  Report Type: 
  Country: None (occurrence: None)
  Receive Date: 20120605
  Receipt Date: 20120522
  Transmission Date: 20120825
  Serious: Yes (Death, Life-Threatening, Hospitalization, Other)
  Sender: FDA-Public Use
  Company Number: DK-TEVA-339292ISR

PATIENT
  Sex: Female
  Weight: 80 kg

DRUGS (3)
  1. ASPIRIN [Concomitant]
     Dosage: 300-500 MG, LOADING DOSE
  2. CLOPIDOGREL [Suspect]
  3. ASPIRIN [Concomitant]
     Dosage: 100 MG, QD, MAINTENANCE DOSE

REACTIONS (4)
  - ELECTROLYTE IMBALANCE [None]
  - CARDIAC FAILURE [None]
  - ACUTE MYOCARDIAL INFARCTION [None]
  - CARDIAC ARREST [None]
